FAERS Safety Report 8602358-6 (Version None)
Quarter: 2012Q3

REPORT INFORMATION
  Report Type: 
  Country: None (occurrence: None)
  Receive Date: 20120817
  Receipt Date: 20070424
  Transmission Date: 20120928
  Serious: Yes (Other)
  Sender: FDA-Public Use
  Company Number: CO-PFIZER INC-2012200924

PATIENT
  Age: 79 Year
  Sex: Female

DRUGS (7)
  1. ACETYLSALICYLIC ACID [Concomitant]
     Dosage: 100 MG, 1X/DAY
     Route: 048
  2. LIPITOR [Suspect]
     Dosage: 10 MG, 1X/DAY
     Route: 048
  3. QUINAPRIL AND HYDROCHLOROTHIAZIDE [Suspect]
     Dosage: 20MG/12.5 MG PER DAY
     Route: 048
  4. METOPROFERM [Concomitant]
     Dosage: 100 MG, 2X/DAY
     Route: 048
  5. GLIBENCLAMIDE [Concomitant]
     Dosage: 5 MG, 1X/DAY
     Route: 048
  6. AMLODIPINE [Concomitant]
     Dosage: 5 MG, 2X/DAY
     Route: 048
  7. METFORMIN [Concomitant]
     Dosage: 850 MG, 1X/DAY
     Route: 048

REACTIONS (2)
  - HYPERTENSIVE EMERGENCY [None]
  - DYSPNOEA [None]
